FAERS Safety Report 8266059-9 (Version None)
Quarter: 2012Q2

REPORT INFORMATION
  Report Type: 
  Country: None (occurrence: None)
  Receive Date: 20120406
  Receipt Date: 20120323
  Transmission Date: 20120825
  Serious: Yes (Other)
  Sender: FDA-Public Use
  Company Number: GB-CELGENEUS-167-21660-12032704

PATIENT
  Age: 65 Year
  Sex: Female

DRUGS (1)
  1. ABRAXANE [Suspect]
     Route: 065

REACTIONS (5)
  - DIARRHOEA [None]
  - FEMUR FRACTURE [None]
  - MOUTH ULCERATION [None]
  - PLATELET COUNT DECREASED [None]
  - MALAISE [None]
